FAERS Safety Report 23914053 (Version 2)
Quarter: 2024Q2

REPORT INFORMATION
  Report Type: Report from Study
  Country: US (occurrence: US)
  Receive Date: 20240529
  Receipt Date: 20240611
  Transmission Date: 20240716
  Serious: Yes (Other)
  Sender: FDA-Public Use
  Company Number: US-JNJFOC-20240537930

PATIENT
  Sex: Female

DRUGS (2)
  1. SPRAVATO [Suspect]
     Active Substance: ESKETAMINE
     Indication: Depression
     Dates: start: 202402
  2. SPRAVATO [Suspect]
     Active Substance: ESKETAMINE
     Dates: start: 20240604

REACTIONS (5)
  - Disability [Unknown]
  - Feeling abnormal [Unknown]
  - Product dose omission issue [Unknown]
  - Fatigue [Unknown]
  - Depression [Unknown]
